FAERS Safety Report 19731622 (Version 1)
Quarter: 2021Q3

REPORT INFORMATION
  Report Type: Spontaneous
  Country: US (occurrence: US)
  Receive Date: 20210820
  Receipt Date: 20210820
  Transmission Date: 20211014
  Serious: Yes (Hospitalization, Other)
  Sender: FDA-Public Use
  Company Number: US-ABBVIE-21K-163-4045918-00

PATIENT
  Age: 30 Year
  Sex: Male
  Weight: 77.18 kg

DRUGS (2)
  1. MAVYRET [Suspect]
     Active Substance: GLECAPREVIR\PIBRENTASVIR
     Indication: HEPATITIS C
     Dosage: 100 MG/40 MG
     Route: 048
     Dates: start: 202107
  2. COVID?19 VACCINE [Concomitant]
     Indication: COVID-19 IMMUNISATION
     Dosage: JOHNSON^S AND JOHNSON^S
     Route: 030
     Dates: start: 202101, end: 202101

REACTIONS (5)
  - Peripheral swelling [Not Recovered/Not Resolved]
  - Pyrexia [Not Recovered/Not Resolved]
  - Medical device site infection [Unknown]
  - Medical device site erosion [Unknown]
  - Imprisonment [Recovered/Resolved]

NARRATIVE: CASE EVENT DATE: 20210804
